FAERS Safety Report 11400024 (Version 1)
Quarter: 2015Q3

REPORT INFORMATION
  Report Type: Spontaneous
  Country: FR (occurrence: FR)
  Receive Date: 20150820
  Receipt Date: 20150820
  Transmission Date: 20151125
  Serious: Yes (Life-Threatening, Hospitalization)
  Sender: FDA-Public Use
  Company Number: FR-DSJP-DSE-2015-125330

PATIENT

DRUGS (4)
  1. PANTOPRAZOLE SODIUM. [Suspect]
     Active Substance: PANTOPRAZOLE SODIUM
     Indication: SUICIDE ATTEMPT
     Dosage: 56 DF, TOTAL
     Route: 048
     Dates: start: 20150606, end: 20150606
  2. OKIMUS [Suspect]
     Active Substance: HAWTHORN LEAF WITH FLOWER\QUININE
     Indication: SUICIDE ATTEMPT
     Dosage: 40 DF, TOTAL
     Route: 048
     Dates: start: 20150606, end: 20150606
  3. DOMPERIDONE [Suspect]
     Active Substance: DOMPERIDONE
     Indication: SUICIDE ATTEMPT
     Dosage: 40 DF, TOTAL
     Route: 048
     Dates: start: 20150606, end: 20150606
  4. OLMETEC [Suspect]
     Active Substance: OLMESARTAN MEDOXOMIL
     Indication: SUICIDE ATTEMPT
     Dosage: 90 DF, TOTAL
     Route: 048
     Dates: start: 20150606, end: 20150606

REACTIONS (4)
  - Hypotension [Recovered/Resolved]
  - Hypokalaemia [Recovered/Resolved]
  - Intentional overdose [Recovered/Resolved]
  - Shock [Recovered/Resolved]

NARRATIVE: CASE EVENT DATE: 20150606
